FAERS Safety Report 7921310 (Version 4)
Quarter: 2015Q4

REPORT INFORMATION
  Report Type: Spontaneous
  Country: US (occurrence: US)
  Receive Date: 20110429
  Receipt Date: 20151103
  Transmission Date: 20160305
  Serious: Yes (Hospitalization)
  Sender: FDA-Public Use
  Company Number: US-ASTRAZENECA-2010SE40957

PATIENT
  Sex: Female
  Weight: 78 kg

DRUGS (9)
  1. BYSTOLIC [Concomitant]
     Active Substance: NEBIVOLOL HYDROCHLORIDE
  2. NEXIUM [Suspect]
     Active Substance: ESOMEPRAZOLE MAGNESIUM
     Indication: DYSPEPSIA
     Route: 048
     Dates: start: 2005, end: 201510
  3. TIZANIDINE. [Concomitant]
     Active Substance: TIZANIDINE
     Indication: MUSCLE RELAXANT THERAPY
     Route: 048
  4. PRAVASTATIN [Concomitant]
     Active Substance: PRAVASTATIN\PRAVASTATIN SODIUM
     Indication: BLOOD CHOLESTEROL ABNORMAL
     Route: 048
     Dates: start: 20151013
  5. OXYCODONE [Concomitant]
     Active Substance: OXYCODONE
     Indication: INTERVERTEBRAL DISC DEGENERATION
     Dosage: 5-325 MG TWICE DAILY AS NEEDED
  6. CRESTOR [Suspect]
     Active Substance: ROSUVASTATIN CALCIUM
     Indication: BLOOD CHOLESTEROL ABNORMAL
     Route: 048
     Dates: start: 2005, end: 201510
  7. PROPRANOLOL [Concomitant]
     Active Substance: PROPRANOLOL\PROPRANOLOL HYDROCHLORIDE
     Indication: PULSE ABNORMAL
     Route: 048
     Dates: start: 2009
  8. CETIRIZINE [Concomitant]
     Active Substance: CETIRIZINE HYDROCHLORIDE
     Indication: HYPERSENSITIVITY
     Dates: start: 2012
  9. PANTOPRAZOLE [Concomitant]
     Active Substance: PANTOPRAZOLE SODIUM
     Indication: DYSPEPSIA
     Route: 048
     Dates: start: 20151013

REACTIONS (16)
  - Seasonal allergy [Unknown]
  - Gastrooesophageal reflux disease [Unknown]
  - Influenza [Unknown]
  - Restless legs syndrome [Unknown]
  - Dyspnoea [Unknown]
  - Head discomfort [Unknown]
  - Vomiting [Unknown]
  - Pancreatic disorder [Unknown]
  - Laryngitis [Unknown]
  - Diarrhoea [Unknown]
  - Dyspepsia [Unknown]
  - Drug dose omission [Unknown]
  - Intervertebral disc degeneration [Unknown]
  - Regurgitation [Unknown]
  - Malaise [Unknown]
  - Intentional product misuse [Unknown]
